FAERS Safety Report 17434807 (Version 1)
Quarter: 2020Q1

REPORT INFORMATION
  Report Type: Spontaneous
  Country: US (occurrence: US)
  Receive Date: 20200219
  Receipt Date: 20200219
  Transmission Date: 20200409
  Serious: Yes (Other)
  Sender: FDA-Public Use
  Company Number: US-PFIZER INC-2020072167

PATIENT
  Age: 90 Year
  Sex: Female

DRUGS (2)
  1. OCUVITE [ASCORBIC ACID;RETINOL;TOCOPHEROL] [Concomitant]
     Dosage: UNK
  2. XELJANZ XR [Suspect]
     Active Substance: TOFACITINIB CITRATE
     Dosage: 11 MG, UNK

REACTIONS (1)
  - Macular degeneration [Unknown]
